FAERS Safety Report 19771001 (Version 2)
Quarter: 2021Q3

REPORT INFORMATION
  Report Type: Report from Study
  Country: FR (occurrence: FR)
  Receive Date: 20210831
  Receipt Date: 20210831
  Transmission Date: 20211014
  Serious: No
  Sender: FDA-Public Use
  Company Number: FR-ORPHANEU-2020003612

PATIENT

DRUGS (2)
  1. PASIREOTIDE 1967+UNK [Suspect]
     Active Substance: PASIREOTIDE
     Indication: ACROMEGALY
     Dosage: UNK
  2. LEVOTHYROX [Concomitant]
     Active Substance: LEVOTHYROXINE
     Indication: THYROID STIMULATING HORMONE DEFICIENCY
     Dosage: 75 MICROGRAM
     Route: 048
     Dates: start: 20171023

REACTIONS (3)
  - Maternal exposure during pregnancy [Unknown]
  - Abdominal pain upper [Recovered/Resolved]
  - Normal newborn [Unknown]

NARRATIVE: CASE EVENT DATE: 201901
